FAERS Safety Report 9068862 (Version 1)
Quarter: 2013Q1

REPORT INFORMATION
  Report Type: Spontaneous
  Country: NO (occurrence: NO)
  Receive Date: 20130215
  Receipt Date: 20130215
  Transmission Date: 20140127
  Serious: Yes (Hospitalization)
  Sender: FDA-Public Use
  Company Number: NO-PFIZER INC-2013056627

PATIENT
  Age: 65 Year
  Sex: Female

DRUGS (7)
  1. CORDARONE [Suspect]
     Indication: SUPRAVENTRICULAR TACHYCARDIA
     Dosage: 200 MG, UNK
     Route: 048
     Dates: start: 20130103
  2. JANUMET [Concomitant]
     Dosage: UNK
  3. AMARYL [Concomitant]
     Dosage: UNK
  4. HYDROCHLOROTHIAZIDE/LOSARTAN [Concomitant]
     Dosage: UNK
  5. HIPREX [Concomitant]
     Dosage: UNK
  6. INEGY [Concomitant]
     Dosage: UNK
  7. ALBYL-E [Concomitant]
     Dosage: UNK

REACTIONS (5)
  - General physical health deterioration [Recovered/Resolved]
  - Vomiting [Recovered/Resolved]
  - Decreased appetite [Recovered/Resolved]
  - Dizziness [Recovered/Resolved]
  - Nausea [Recovered/Resolved]
